FAERS Safety Report 12943157 (Version 1)
Quarter: 2016Q4

REPORT INFORMATION
  Report Type: Spontaneous
  Country: US (occurrence: US)
  Receive Date: 20161115
  Receipt Date: 20161115
  Transmission Date: 20170207
  Serious: No
  Sender: FDA-Public Use
  Company Number: US-NOVOPROD-467240

PATIENT
  Age: 65 Year
  Sex: Female

DRUGS (2)
  1. VAGIFEM LD [Suspect]
     Active Substance: ESTRADIOL
     Indication: HORMONE THERAPY
     Dosage: UNK
     Route: 067
  2. VAGIFEM LD [Suspect]
     Active Substance: ESTRADIOL
     Dosage: UNK
     Route: 067

REACTIONS (2)
  - Product physical issue [Not Recovered/Not Resolved]
  - Hot flush [Not Recovered/Not Resolved]
